FAERS Safety Report 21377140 (Version 1)
Quarter: 2022Q3

REPORT INFORMATION
  Report Type: Spontaneous
  Country: US (occurrence: None)
  Receive Date: 20220925
  Receipt Date: 20220925
  Transmission Date: 20221027
  Serious: Yes (Hospitalization)
  Sender: FDA-Public Use
  Company Number: None

PATIENT
  Age: 22 Year
  Sex: Male

DRUGS (1)
  1. DILAUDID [Suspect]
     Active Substance: HYDROMORPHONE HYDROCHLORIDE
     Indication: Pain
     Dosage: OTHER FREQUENCY : ONE TIME;?
     Route: 040
     Dates: start: 20220921, end: 20220921

REACTIONS (3)
  - Documented hypersensitivity to administered product [None]
  - Unresponsive to stimuli [None]
  - Respiratory depression [None]

NARRATIVE: CASE EVENT DATE: 20220921
